FAERS Safety Report 11248017 (Version 1)
Quarter: 2015Q3

REPORT INFORMATION
  Report Type: Spontaneous
  Country: CA (occurrence: CA)
  Receive Date: 20150708
  Receipt Date: 20150708
  Transmission Date: 20151125
  Serious: Yes (Hospitalization, Other)
  Sender: FDA-Public Use
  Company Number: CA-HOSPIRA-2746282

PATIENT
  Sex: Female
  Weight: 97 kg

DRUGS (1)
  1. PRECEDEX [Suspect]
     Active Substance: DEXMEDETOMIDINE HYDROCHLORIDE
     Indication: PRODUCT USED FOR UNKNOWN INDICATION
     Dosage: 0.7 MCG/KG
     Route: 042

REACTIONS (5)
  - Eye movement disorder [Recovered/Resolved]
  - Sinus disorder [Recovered/Resolved]
  - Bradycardia [Recovered/Resolved]
  - Mastoid disorder [Recovered/Resolved]
  - Hypotension [Recovered/Resolved]
